FAERS Safety Report 17746395 (Version 1)
Quarter: 2020Q2

REPORT INFORMATION
  Report Type: Spontaneous
  Country: US (occurrence: US)
  Receive Date: 20200505
  Receipt Date: 20200505
  Transmission Date: 20200714
  Serious: No
  Sender: FDA-Public Use
  Company Number: None

PATIENT
  Age: 66 Year
  Sex: Male
  Weight: 101.25 kg

DRUGS (9)
  1. GLEEVEC [Suspect]
     Active Substance: IMATINIB MESYLATE
     Indication: HYPERGLYCAEMIC HYPEROSMOLAR NONKETOTIC SYNDROME
     Route: 048
     Dates: start: 20200107
  2. ONDANSETRON [Concomitant]
     Active Substance: ONDANSETRON
  3. METFORMIN [Concomitant]
     Active Substance: METFORMIN HYDROCHLORIDE
  4. HYDROCODONE-ACETAMINOPHEN [Concomitant]
     Active Substance: ACETAMINOPHEN\HYDROCODONE
  5. DIAZEPAM. [Concomitant]
     Active Substance: DIAZEPAM
  6. ATORVASTATIN [Concomitant]
     Active Substance: ATORVASTATIN
  7. TRICOR [Concomitant]
     Active Substance: FENOFIBRATE
  8. TASIGNA [Concomitant]
     Active Substance: NILOTINIB
  9. LOSARTAN. [Concomitant]
     Active Substance: LOSARTAN

REACTIONS (1)
  - Blood pressure increased [None]

NARRATIVE: CASE EVENT DATE: 20200505
